FAERS Safety Report 4782460-X (Version None)
Quarter: 2005Q3

REPORT INFORMATION
  Report Type: 
  Country: None (occurrence: None)
  Receive Date: 20050929
  Receipt Date: 20041117
  Transmission Date: 20060218
  Serious: No
  Sender: FDA-Public Use
  Company Number: 389511

PATIENT
  Age: 87 Year
  Sex: Male

DRUGS (2)
  1. COREG [Suspect]
     Dosage: 12.5MG TWICE PER DAY
     Route: 048
  2. NO CONCURRENT MEDICATION [Concomitant]

REACTIONS (1)
  - ARTHRALGIA [None]
